FAERS Safety Report 12321647 (Version 1)
Quarter: 2016Q2

REPORT INFORMATION
  Report Type: Spontaneous
  Country: US (occurrence: US)
  Receive Date: 20160502
  Receipt Date: 20160502
  Transmission Date: 20160815
  Serious: No
  Sender: FDA-Public Use
  Company Number: US-BAYER-2016-075901

PATIENT
  Sex: Female

DRUGS (1)
  1. CLARITIN [Suspect]
     Active Substance: LORATADINE
     Indication: MULTIPLE ALLERGIES
     Dosage: 1 DF, UNK

REACTIONS (4)
  - Somnolence [None]
  - Mobility decreased [None]
  - Condition aggravated [None]
  - Nasal congestion [None]

NARRATIVE: CASE EVENT DATE: 20160416
